FAERS Safety Report 7691873-8 (Version None)
Quarter: 2011Q3

REPORT INFORMATION
  Report Type: 
  Country: None (occurrence: None)
  Receive Date: 20110818
  Receipt Date: 20110808
  Transmission Date: 20111222
  Serious: No
  Sender: FDA-Public Use
  Company Number: FR-JNJFOC-20110610430

PATIENT
  Sex: Male
  Weight: 78 kg

DRUGS (3)
  1. DURAGESIC-100 [Suspect]
     Indication: PAIN
     Route: 062
     Dates: start: 20091101
  2. AMITRIPTYLINE HCL [Concomitant]
     Indication: PAIN
     Route: 048
     Dates: start: 19980817
  3. CLONAZEPAM [Concomitant]
     Indication: PAIN
     Route: 048
     Dates: start: 19980817

REACTIONS (5)
  - WRONG TECHNIQUE IN DRUG USAGE PROCESS [None]
  - INSOMNIA [None]
  - AGITATION [None]
  - PRODUCT ADHESION ISSUE [None]
  - INCORRECT DRUG ADMINISTRATION DURATION [None]
